FAERS Safety Report 10477997 (Version 1)
Quarter: 2014Q3

REPORT INFORMATION
  Report Type: Spontaneous
  Country: US (occurrence: None)
  Receive Date: 20140924
  Receipt Date: 20140924
  Transmission Date: 20150326
  Serious: Yes (Hospitalization, Other)
  Sender: FDA-Public Use
  Company Number: 2009S1006460

PATIENT
  Age: 59 Year
  Sex: Female

DRUGS (15)
  1. TORSEMIDE (TORASEMIDE) [Concomitant]
  2. ZETIA [Concomitant]
     Active Substance: EZETIMIBE
  3. PHOSPHO-SODA [Suspect]
     Active Substance: SODIUM PHOSPHATE, DIBASIC\SODIUM PHOSPHATE, MONOBASIC
     Indication: GASTRIC BYPASS
     Route: 048
     Dates: start: 20081208, end: 20081208
  4. METFORMIN [Concomitant]
     Active Substance: METFORMIN HYDROCHLORIDE
  5. AMARYL [Concomitant]
     Active Substance: GLIMEPIRIDE
  6. LOTREL (BENAZEPRIL HYDROCHLORIDE, AMLODIPINE BESILATE) [Concomitant]
  7. LIPITOR [Concomitant]
     Active Substance: ATORVASTATIN CALCIUM
  8. WELLBUTRIN [Concomitant]
     Active Substance: BUPROPION HYDROCHLORIDE
  9. CYMBALTA [Concomitant]
     Active Substance: DULOXETINE HYDROCHLORIDE
  10. TORADOL [Concomitant]
     Active Substance: KETOROLAC TROMETHAMINE
  11. NEOMYCIN (NEOMYCIN) (TABLET) [Suspect]
     Active Substance: NEOMYCIN
     Indication: GASTRIC BYPASS
     Route: 048
     Dates: start: 20081208, end: 20081208
  12. NEURONTIN [Concomitant]
     Active Substance: GABAPENTIN
  13. COREG [Concomitant]
     Active Substance: CARVEDILOL
  14. FLAGYL [Suspect]
     Active Substance: METRONIDAZOLE\METRONIDAZOLE HYDROCHLORIDE
     Indication: GASTRIC BYPASS
     Route: 048
     Dates: start: 20081208, end: 20081208
  15. ASPIRIN (ACETYLSALICYLIC ACID) [Concomitant]
     Active Substance: ASPIRIN

REACTIONS (23)
  - Headache [None]
  - Cholelithiasis [None]
  - Blood parathyroid hormone increased [None]
  - Hyperparathyroidism secondary [None]
  - Renal failure chronic [None]
  - Procedural hypotension [None]
  - Nephrogenic anaemia [None]
  - Renal cyst [None]
  - Syncope [None]
  - Fall [None]
  - Cervical vertebral fracture [None]
  - Postoperative renal failure [None]
  - Acute prerenal failure [None]
  - Renal tubular necrosis [None]
  - Neck pain [None]
  - Wound [None]
  - Hypovolaemia [None]
  - Lower gastrointestinal haemorrhage [None]
  - Hyperosmolar state [None]
  - Hypernatraemia [None]
  - Gait disturbance [None]
  - Constipation [None]
  - Hypomagnesaemia [None]

NARRATIVE: CASE EVENT DATE: 20081209
